FAERS Safety Report 14408663 (Version 1)
Quarter: 2018Q1

REPORT INFORMATION
  Report Type: Spontaneous
  Country: FR (occurrence: FR)
  Receive Date: 20180119
  Receipt Date: 20180119
  Transmission Date: 20180509
  Serious: Yes (Hospitalization)
  Sender: FDA-Public Use
  Company Number: FR-SUN PHARMACEUTICAL INDUSTRIES LTD-2018R1-160145

PATIENT
  Age: 73 Year
  Sex: Male
  Weight: 54.7 kg

DRUGS (11)
  1. VALACICLOVIR [Suspect]
     Active Substance: VALACYCLOVIR HYDROCHLORIDE
     Indication: OPPORTUNISTIC INFECTION PROPHYLAXIS
     Dosage: 500 MG, UNK
     Route: 048
     Dates: start: 20170131, end: 20170321
  2. COVERSYL 2,5 MG, COMPRIME PELLICULE [Concomitant]
     Active Substance: PERINDOPRIL ARGININE
     Route: 048
     Dates: start: 201609, end: 20170321
  3. GEMCITABINE INTAS 100 MG/ML, SOLUTION A DILUER POUR PERFUSION [Suspect]
     Active Substance: GEMCITABINE HYDROCHLORIDE
     Indication: PERIPHERAL T-CELL LYMPHOMA UNSPECIFIED RECURRENT
     Dosage: 1700 MG, CYCLICAL
     Route: 042
     Dates: start: 20170301
  4. AUGMENTIN [Suspect]
     Active Substance: AMOXICILLIN\CLAVULANATE POTASSIUM
     Indication: PYREXIA
     Dosage: 1G/125MG ; 3 FOIS PAR JOUR ()
     Route: 048
     Dates: start: 20170317, end: 20170321
  5. SPECIAFOLDINE 5 MG, COMPRIME [Suspect]
     Active Substance: FOLIC ACID
     Indication: PRODUCT USED FOR UNKNOWN INDICATION
     Route: 048
     Dates: start: 20170131, end: 20170321
  6. SERETIDE [Concomitant]
     Active Substance: FLUTICASONE PROPIONATE\SALMETEROL XINAFOATE
     Route: 045
     Dates: start: 2015
  7. PERMIXON 160 MG, GELULE [Concomitant]
     Route: 048
     Dates: start: 2015, end: 20170321
  8. BACTRIM [Suspect]
     Active Substance: SULFAMETHOXAZOLE\TRIMETHOPRIM
     Indication: OPPORTUNISTIC INFECTION PROPHYLAXIS
     Route: 048
     Dates: start: 20170201, end: 20170321
  9. XATRAL LP 10 MG, COMPRIME A LIBERATION PROLONGEE [Suspect]
     Active Substance: ALFUZOSIN
     Route: 048
     Dates: start: 201701, end: 20170321
  10. OXALIPLATINE HOSPIRA [Suspect]
     Active Substance: OXALIPLATIN
     Indication: PERIPHERAL T-CELL LYMPHOMA UNSPECIFIED RECURRENT
     Dosage: 180 MG, CYCLICAL
     Route: 042
     Dates: start: 20170301
  11. PRAXILENE 200 MG, COMPRIME PELLICULE [Concomitant]
     Active Substance: NAFRONYL OXALATE
     Dosage: 400 MG, UNK
     Route: 048
     Dates: start: 2017

REACTIONS (1)
  - Dermatitis exfoliative generalised [Recovering/Resolving]

NARRATIVE: CASE EVENT DATE: 20170310
